FAERS Safety Report 9988173 (Version 2)
Quarter: 2014Q2

REPORT INFORMATION
  Report Type: Spontaneous
  Country: US (occurrence: US)
  Receive Date: 20140309
  Receipt Date: 20140413
  Transmission Date: 20141212
  Serious: No
  Sender: FDA-Public Use
  Company Number: US-TEVA-467337USA

PATIENT
  Age: 21 Year
  Sex: Female

DRUGS (5)
  1. NUVIGIL [Suspect]
     Indication: NARCOLEPSY
     Dosage: 250 MILLIGRAM DAILY;
  2. NUVIGIL [Suspect]
     Indication: SLEEP APNOEA SYNDROME
     Dosage: 62.5 MILLIGRAM DAILY;
  3. ALL OTHER THERAPEUTIC PRODUCTS [Concomitant]
     Indication: MENTAL DISORDER
  4. CELEXA [Concomitant]
     Dosage: 40 MILLIGRAM DAILY;
  5. LAMICTAL [Concomitant]
     Dosage: 300 MILLIGRAM DAILY;

REACTIONS (4)
  - Mania [Recovered/Resolved]
  - Insomnia [Recovered/Resolved]
  - Sexual dysfunction [Recovered/Resolved]
  - Therapeutic response changed [Unknown]
